FAERS Safety Report 13195654 (Version 1)
Quarter: 2017Q1

REPORT INFORMATION
  Report Type: Spontaneous
  Country: US (occurrence: US)
  Receive Date: 20170207
  Receipt Date: 20170207
  Transmission Date: 20170428
  Serious: No
  Sender: FDA-Public Use
  Company Number: None

PATIENT
  Sex: Male

DRUGS (2)
  1. SUTENT [Suspect]
     Active Substance: SUNITINIB MALATE
     Indication: NEOPLASM MALIGNANT
     Route: 048
     Dates: start: 20160128, end: 20170120
  2. SUTENT [Suspect]
     Active Substance: SUNITINIB MALATE
     Indication: CILIARY BODY DISORDER
     Route: 048
     Dates: start: 20160128, end: 20170120

REACTIONS (1)
  - Blood uric acid increased [None]
